FAERS Safety Report 9665142 (Version 1)
Quarter: 2013Q4

REPORT INFORMATION
  Report Type: Spontaneous
  Country: US (occurrence: US)
  Receive Date: 20131101
  Receipt Date: 20131101
  Transmission Date: 20140711
  Serious: Yes (Life-Threatening, Other)
  Sender: FDA-Public Use
  Company Number: US-LUNDBECK-DKLU1094794

PATIENT
  Sex: Male

DRUGS (5)
  1. ONFI (ORAL SUSPENSION) [Suspect]
     Indication: CONVULSION
     Dates: start: 20131001
  2. ONFI [Suspect]
     Indication: CONVULSION
  3. ONFI [Suspect]
  4. KEPPRA [Concomitant]
     Indication: PRODUCT USED FOR UNKNOWN INDICATION
  5. LAMICTAL [Concomitant]
     Indication: PRODUCT USED FOR UNKNOWN INDICATION
     Dates: end: 20131009

REACTIONS (3)
  - Choking [Recovering/Resolving]
  - Convulsion [Recovering/Resolving]
  - Hypersensitivity [Not Recovered/Not Resolved]
